FAERS Safety Report 9167470 (Version 2)
Quarter: 2013Q3

REPORT INFORMATION
  Report Type: Spontaneous
  Country: JP (occurrence: JP)
  Receive Date: 20130318
  Receipt Date: 20130709
  Transmission Date: 20140515
  Serious: Yes (Other)
  Sender: FDA-Public Use
  Company Number: JP-JNJFOC-20130304469

PATIENT
  Age: 60 Year
  Sex: Male
  Weight: 80 kg

DRUGS (10)
  1. XARELTO [Suspect]
     Indication: ATRIAL FIBRILLATION
     Route: 048
     Dates: start: 20130207, end: 20130302
  2. XARELTO [Suspect]
     Indication: CEREBROVASCULAR ACCIDENT PROPHYLAXIS
     Route: 048
     Dates: start: 20130207, end: 20130302
  3. KIPRES [Concomitant]
     Route: 048
     Dates: start: 19980610
  4. CLEANAL [Concomitant]
     Route: 048
     Dates: start: 19980610
  5. HALCION [Concomitant]
     Route: 048
     Dates: start: 19980610
  6. URSO [Concomitant]
     Route: 048
     Dates: start: 19980610
  7. LASIX [Concomitant]
     Route: 048
     Dates: start: 19980610
  8. ACTOS [Concomitant]
     Route: 048
     Dates: start: 20070531
  9. GLACTIV [Concomitant]
     Route: 048
     Dates: start: 20070531
  10. MITIGLINIDE [Concomitant]
     Route: 048
     Dates: start: 201211

REACTIONS (1)
  - Polymyositis [Recovered/Resolved with Sequelae]
